FAERS Safety Report 7194798-X (Version None)
Quarter: 2010Q4

REPORT INFORMATION
  Report Type: 
  Country: None (occurrence: None)
  Receive Date: 20101223
  Receipt Date: 20101214
  Transmission Date: 20110411
  Serious: No
  Sender: FDA-Public Use
  Company Number: DE-ELI_LILLY_AND_COMPANY-DE201012003577

PATIENT
  Age: 41 Year
  Sex: Male
  Weight: 97 kg

DRUGS (2)
  1. CYMBALTA [Suspect]
     Indication: DEPRESSED MOOD
     Dosage: 60 MG, UNK
     Route: 048
     Dates: start: 20100801, end: 20101101
  2. CYMBALTA [Suspect]
     Dosage: 30 MG, UNKNOWN
     Route: 048
     Dates: start: 20101101, end: 20101213

REACTIONS (16)
  - APATHY [None]
  - DIZZINESS [None]
  - ENERGY INCREASED [None]
  - ERECTILE DYSFUNCTION [None]
  - FATIGUE [None]
  - FLATULENCE [None]
  - HEADACHE [None]
  - LIBIDO DECREASED [None]
  - LIVER FUNCTION TEST ABNORMAL [None]
  - NECK PAIN [None]
  - ORGASM ABNORMAL [None]
  - PALPITATIONS [None]
  - PRURITUS GENERALISED [None]
  - SLEEP DISORDER [None]
  - TINNITUS [None]
  - WEIGHT INCREASED [None]
